FAERS Safety Report 17809875 (Version 2)
Quarter: 2020Q2

REPORT INFORMATION
  Report Type: Spontaneous
  Country: US (occurrence: US)
  Receive Date: 20200521
  Receipt Date: 20200601
  Transmission Date: 20200714
  Serious: No
  Sender: FDA-Public Use
  Company Number: US-JNJFOC-20200429513

PATIENT

DRUGS (4)
  1. TYLENOL [Suspect]
     Active Substance: ACETAMINOPHEN
     Indication: DERMATITIS ATOPIC
     Dosage: 1/4 TABLET
     Route: 065
  2. BENADRYL [Suspect]
     Active Substance: DIPHENHYDRAMINE HYDROCHLORIDE
     Indication: PRURITUS
  3. TYLENOL [Suspect]
     Active Substance: ACETAMINOPHEN
     Indication: PRURITUS
  4. BENADRYL [Suspect]
     Active Substance: DIPHENHYDRAMINE HYDROCHLORIDE
     Indication: DERMATITIS ATOPIC
     Dosage: HALF OF A 25 MG TABLET
     Route: 065

REACTIONS (3)
  - Product use in unapproved indication [Unknown]
  - Therapeutic response unexpected [Unknown]
  - Wrong technique in product usage process [Unknown]
